FAERS Safety Report 14889635 (Version 1)
Quarter: 2018Q2

REPORT INFORMATION
  Report Type: Report from Study
  Country: None (occurrence: US)
  Receive Date: 20180514
  Receipt Date: 20180514
  Transmission Date: 20180711
  Serious: Yes (Other)
  Sender: FDA-Public Use
  Company Number: US-ABBVIE-17K-163-1864488-00

PATIENT
  Age: 27 Year
  Sex: Male
  Weight: 95.34 kg

DRUGS (2)
  1. HUMIRA [Suspect]
     Active Substance: ADALIMUMAB
     Route: 058
  2. HUMIRA [Suspect]
     Active Substance: ADALIMUMAB
     Indication: COLITIS ULCERATIVE
     Route: 058

REACTIONS (10)
  - Drug effect incomplete [Not Recovered/Not Resolved]
  - Abdominal distension [Unknown]
  - Pruritus [Unknown]
  - Weight increased [Recovered/Resolved]
  - Weight increased [Unknown]
  - Concussion [Unknown]
  - Faeces discoloured [Not Recovered/Not Resolved]
  - Internal haemorrhage [Unknown]
  - Abdominal distension [Recovered/Resolved]
  - Haematochezia [Not Recovered/Not Resolved]

NARRATIVE: CASE EVENT DATE: 20101010
